FAERS Safety Report 5391373-4 (Version None)
Quarter: 2007Q3

REPORT INFORMATION
  Report Type: 
  Country: None (occurrence: None)
  Receive Date: 20070716
  Receipt Date: 20070716
  Transmission Date: 20080115
  Serious: Yes (Death)
  Sender: FDA-Public Use
  Company Number: None

PATIENT
  Age: 17 Year
  Sex: Female

DRUGS (3)
  1. BENGAY [Suspect]
  2. ULTRA STRENGTH BENGAY [Suspect]
     Dosage: CREAM
  3. ICY HOT [Suspect]
     Dosage: CREAM

REACTIONS (2)
  - DRUG TOXICITY [None]
  - MEDICATION ERROR [None]
